FAERS Safety Report 5390391-X (Version None)
Quarter: 2007Q3

REPORT INFORMATION
  Report Type: 
  Country: None (occurrence: None)
  Receive Date: 20070718
  Receipt Date: 20070706
  Transmission Date: 20080115
  Serious: Yes (Other)
  Sender: FDA-Public Use
  Company Number: US-PFIZER INC-2007055645

PATIENT
  Sex: Female
  Weight: 70.454 kg

DRUGS (4)
  1. EXUBERA [Suspect]
  2. ZESTORETIC [Concomitant]
     Indication: HYPERTENSION
  3. MULTIVITAMIN [Concomitant]
  4. LIPITOR [Concomitant]
     Indication: BLOOD CHOLESTEROL INCREASED

REACTIONS (5)
  - BLOOD GLUCOSE INCREASED [None]
  - COUGH [None]
  - DEVICE MALFUNCTION [None]
  - VISUAL ACUITY REDUCED [None]
  - WEIGHT INCREASED [None]
